FAERS Safety Report 9018228 (Version 2)
Quarter: 2013Q1

REPORT INFORMATION
  Report Type: Spontaneous
  Country: JP (occurrence: JP)
  Receive Date: 20130117
  Receipt Date: 20130201
  Transmission Date: 20140127
  Serious: Yes (Hospitalization)
  Sender: FDA-Public Use
  Company Number: JP-ASTRAZENECA-2013SE02886

PATIENT
  Sex: Male

DRUGS (2)
  1. MEROPEN [Suspect]
     Indication: MENINGITIS
     Route: 042
  2. VANCOMYCIN HYDROCHLORIDE [Suspect]
     Route: 065

REACTIONS (1)
  - Granulocyte count decreased [Unknown]
